FAERS Safety Report 6029964-X (Version None)
Quarter: 2009Q1

REPORT INFORMATION
  Report Type: 
  Country: None (occurrence: None)
  Receive Date: 20090107
  Receipt Date: 20090105
  Transmission Date: 20090719
  Serious: Yes (Hospitalization)
  Sender: FDA-Public Use
  Company Number: A0762547A

PATIENT
  Age: 59 Year
  Sex: Male
  Weight: 130.5 kg

DRUGS (10)
  1. COREG CR [Suspect]
     Indication: CARDIOMYOPATHY
     Dosage: 40MGD PER DAY
     Route: 048
     Dates: start: 20080501
  2. SYNTHROID [Suspect]
     Dosage: 250MCG PER DAY
     Route: 048
  3. CYTOMEL [Concomitant]
     Route: 048
  4. METOPROLOL TARTRATE [Concomitant]
  5. ENALAPRIL MALEATE [Concomitant]
  6. FUROSEMIDE [Concomitant]
  7. BUMETANIDE [Concomitant]
  8. DIGOXIN [Concomitant]
  9. SPIRONOLACTONE [Concomitant]
  10. LOSARTAN POTASSIUM [Concomitant]

REACTIONS (4)
  - ADVERSE DRUG REACTION [None]
  - BLOOD THYROID STIMULATING HORMONE ABNORMAL [None]
  - MALAISE [None]
  - THYROID FUNCTION TEST ABNORMAL [None]
